FAERS Safety Report 10163711 (Version 1)
Quarter: 2014Q2

REPORT INFORMATION
  Report Type: Report from Study
  Country: DE (occurrence: NL)
  Receive Date: 20140509
  Receipt Date: 20140509
  Transmission Date: 20141212
  Serious: Yes (Death, Hospitalization)
  Sender: FDA-Public Use
  Company Number: DE-ACTELION-A-US2011-98299

PATIENT
  Age: 83 Year
  Sex: Female

DRUGS (1)
  1. VENTAVIS [Suspect]
     Indication: PULMONARY ARTERIAL HYPERTENSION
     Dosage: 5MCG, (6 AMPOULES PER DAY)
     Route: 055
     Dates: start: 20111024, end: 20111231

REACTIONS (8)
  - Pulmonary arterial hypertension [Fatal]
  - Hospitalisation [Unknown]
  - Hospitalisation [Unknown]
  - Toxicity to various agents [Unknown]
  - Oral fungal infection [Unknown]
  - Oral pain [Unknown]
  - Cheilitis [Unknown]
  - General physical health deterioration [Unknown]
